FAERS Safety Report 24766349 (Version 1)
Quarter: 2024Q4

REPORT INFORMATION
  Report Type: Spontaneous
  Country: DE (occurrence: DE)
  Receive Date: 20241223
  Receipt Date: 20241223
  Transmission Date: 20250115
  Serious: Yes (Other)
  Sender: PFIZER
  Company Number: DE-PFIZER INC-PV202400166350

PATIENT
  Age: 82 Year
  Sex: Male

DRUGS (1)
  1. TAFAMIDIS [Suspect]
     Active Substance: TAFAMIDIS
     Indication: Cardiac amyloidosis
     Dosage: UNK
     Dates: start: 202012

REACTIONS (5)
  - Autonomic neuropathy [Unknown]
  - Condition aggravated [Unknown]
  - Cardiac amyloidosis [Unknown]
  - Condition aggravated [Unknown]
  - Glomerular filtration rate decreased [Unknown]
